FAERS Safety Report 6173325-X (Version None)
Quarter: 2009Q2

REPORT INFORMATION
  Report Type: 
  Country: None (occurrence: None)
  Receive Date: 20090428
  Receipt Date: 20090414
  Transmission Date: 20091009
  Serious: Yes (Other)
  Sender: FDA-Public Use
  Company Number: 2009000712

PATIENT
  Age: 72 Year
  Sex: Female
  Weight: 55 kg

DRUGS (10)
  1. ERLOTINIB (ERLOTINIB) (TABLET) (ERLOTINIB) [Suspect]
     Indication: LUNG ADENOCARCINOMA
     Dosage: (150 MG,QD),ORAL ; (100 MG,QD),ORAL
     Route: 048
     Dates: start: 20080604, end: 20090202
  2. ERLOTINIB (ERLOTINIB) (TABLET) (ERLOTINIB) [Suspect]
     Indication: LUNG ADENOCARCINOMA
     Dosage: (150 MG,QD),ORAL ; (100 MG,QD),ORAL
     Route: 048
     Dates: start: 20090203, end: 20090217
  3. CANDESARTAN CILEXETIL [Concomitant]
  4. NEUROTROPIN (ORGAN LYSATE, STANDARDIZED) [Concomitant]
  5. TIZANIDINE HCL [Concomitant]
  6. MESITAT [Concomitant]
  7. MUCODYNE (CARBOCISTEINE) [Concomitant]
  8. TAGAMET [Concomitant]
  9. APLACE (TROXIPIDE) [Concomitant]
  10. GASMOTIN (MOSAPRIDE CITRATE) [Concomitant]

REACTIONS (4)
  - ANAEMIA [None]
  - BONE MARROW TUMOUR CELL INFILTRATION [None]
  - DISEASE PROGRESSION [None]
  - NON-SMALL CELL LUNG CANCER STAGE IV [None]
